FAERS Safety Report 17203231 (Version 2)
Quarter: 2020Q2

REPORT INFORMATION
  Report Type: Spontaneous
  Country: CA (occurrence: CA)
  Receive Date: 20191226
  Receipt Date: 20200521
  Transmission Date: 20200713
  Serious: Yes (Hospitalization)
  Sender: FDA-Public Use
  Company Number: CA-TEVA-2019-CA-1157307

PATIENT
  Age: 52 Year
  Sex: Female

DRUGS (15)
  1. IVIG [Suspect]
     Active Substance: HUMAN IMMUNOGLOBULIN G
  2. IMMUNOGLOBULIN (IMMUNOGLOBULIN NOS) [Suspect]
     Active Substance: IMMUNE GLOBULIN NOS
     Indication: PRODUCT USED FOR UNKNOWN INDICATION
     Route: 042
  3. CIPRALEX [Concomitant]
     Active Substance: ESCITALOPRAM OXALATE
  4. CLONAZEPAM. [Concomitant]
     Active Substance: CLONAZEPAM
  5. BUPROPION. [Concomitant]
     Active Substance: BUPROPION
  6. COGENTIN [Concomitant]
     Active Substance: BENZTROPINE MESYLATE
  7. ESCITALOPRAM [Concomitant]
     Active Substance: ESCITALOPRAM OXALATE
  8. METHYLPREDNISONE NOS [Suspect]
     Active Substance: METHYLPREDNISOLONE
     Indication: PRODUCT USED FOR UNKNOWN INDICATION
     Dosage: 1000 MILLIGRAM DAILY;
     Route: 042
  9. LORAZEPAM. [Concomitant]
     Active Substance: LORAZEPAM
  10. ZOPICLONE [Concomitant]
     Active Substance: ZOPICLONE
  11. OLANZAPINE. [Suspect]
     Active Substance: OLANZAPINE
     Indication: PSYCHOTIC DISORDER
  12. BENZTROPINE MESYLATE. [Concomitant]
     Active Substance: BENZTROPINE MESYLATE
  13. OLANZAPINE. [Suspect]
     Active Substance: OLANZAPINE
     Indication: SCHIZOPHRENIA
     Dosage: 15 MILLIGRAM DAILY;
  14. HALDOL [Concomitant]
     Active Substance: HALOPERIDOL
  15. HALOPERIDOL. [Concomitant]
     Active Substance: HALOPERIDOL

REACTIONS (10)
  - Alanine aminotransferase increased [Recovering/Resolving]
  - Rash [Recovering/Resolving]
  - Encephalitis autoimmune [Recovering/Resolving]
  - Red blood cells urine [Recovering/Resolving]
  - White blood cells urine positive [Recovering/Resolving]
  - Eosinophil count abnormal [Recovering/Resolving]
  - Haemoglobin urine [Recovering/Resolving]
  - Pyrexia [Recovering/Resolving]
  - Aspartate aminotransferase increased [Recovering/Resolving]
  - Glomerular filtration rate decreased [Recovering/Resolving]
